FAERS Safety Report 19899128 (Version 1)
Quarter: 2021Q3

REPORT INFORMATION
  Report Type: Spontaneous
  Country: US (occurrence: US)
  Receive Date: 20210930
  Receipt Date: 20210930
  Transmission Date: 20211014
  Serious: Yes (Other)
  Sender: FDA-Public Use
  Company Number: US-ROCHE-2594254

PATIENT
  Age: 47 Year
  Sex: Male
  Weight: 81.64 kg

DRUGS (11)
  1. RANIBIZUMAB. [Suspect]
     Active Substance: RANIBIZUMAB
     Indication: DIABETIC RETINAL OEDEMA
     Dosage: MOST RECENT DOSE OF RANIIZUMAB PRIOR TO SAE ON 16/SEP/2019 AT 15:02
     Route: 050
     Dates: start: 20190422
  2. METFORMIN [Concomitant]
     Active Substance: METFORMIN HYDROCHLORIDE
     Indication: TYPE 2 DIABETES MELLITUS
     Route: 048
     Dates: start: 20190117
  3. LOSARTAN. [Concomitant]
     Active Substance: LOSARTAN
     Indication: HYPERTENSION
     Route: 048
     Dates: start: 20190116
  4. GLIPIZIDE. [Concomitant]
     Active Substance: GLIPIZIDE
     Route: 048
     Dates: start: 20190710
  5. AMLODIPINE [Concomitant]
     Active Substance: AMLODIPINE BESYLATE
     Route: 048
     Dates: start: 20190710
  6. RANIBIZUMAB. [Suspect]
     Active Substance: RANIBIZUMAB
     Route: 065
     Dates: start: 20190916
  7. GLIPIZIDE. [Concomitant]
     Active Substance: GLIPIZIDE
     Indication: DIABETES MELLITUS
     Route: 048
     Dates: start: 20190117, end: 20190709
  8. AMLODIPINE [Concomitant]
     Active Substance: AMLODIPINE BESYLATE
     Indication: HYPERTENSION
     Route: 048
     Dates: start: 20190116, end: 20190709
  9. AFLIBERCEPT [Suspect]
     Active Substance: AFLIBERCEPT
     Indication: DIABETIC RETINAL OEDEMA
     Route: 050
     Dates: start: 20190114
  10. AFLIBERCEPT [Suspect]
     Active Substance: AFLIBERCEPT
     Route: 050
     Dates: start: 20190916
  11. RANIBIZUMAB. [Suspect]
     Active Substance: RANIBIZUMAB
     Route: 065
     Dates: start: 20190520

REACTIONS (1)
  - Cataract [Not Recovered/Not Resolved]

NARRATIVE: CASE EVENT DATE: 20191007
